FAERS Safety Report 8890988 (Version 1)
Quarter: 2012Q4

REPORT INFORMATION
  Report Type: 
  Country: US (occurrence: US)
  Receive Date: 20121106
  Receipt Date: 20121106
  Transmission Date: 20130627
  Serious: Yes (Other)
  Sender: FDA-Public Use
  Company Number: US-TEVA-368525USA

PATIENT
  Sex: Female

DRUGS (1)
  1. CARBAMAZEPINE [Suspect]

REACTIONS (8)
  - Convulsion [Unknown]
  - Paralysis [Unknown]
  - Cerebrovascular accident [Unknown]
  - Choking [Unknown]
  - Muscle spasms [Unknown]
  - Mental impairment [Unknown]
  - Somnolence [Unknown]
  - Impaired driving ability [Unknown]
